FAERS Safety Report 8823688 (Version 1)
Quarter: 2012Q4

REPORT INFORMATION
  Report Type: 
  Country: US (occurrence: US)
  Receive Date: 20121003
  Receipt Date: 20121003
  Transmission Date: 20130627
  Serious: No
  Sender: FDA-Public Use
  Company Number: US-PFIZER INC-2012244316

PATIENT
  Sex: Male

DRUGS (1)
  1. NICOTROL NASAL SPRAY [Suspect]
     Dosage: UNK

REACTIONS (4)
  - Nasal discomfort [Unknown]
  - Incorrect route of drug administration [Unknown]
  - Therapeutic response unexpected [Unknown]
  - Pain [Unknown]
